FAERS Safety Report 15151102 (Version 2)
Quarter: 2019Q3

REPORT INFORMATION
  Report Type: Spontaneous
  Country: US (occurrence: US)
  Receive Date: 20180716
  Receipt Date: 20190827
  Transmission Date: 20191004
  Serious: Yes (Other)
  Sender: FDA-Public Use
  Company Number: US-SA-2018SA069369

PATIENT
  Age: 58 Year
  Sex: Female
  Weight: 137.43 kg

DRUGS (18)
  1. PARAPLATIN [Concomitant]
     Active Substance: CARBOPLATIN
     Indication: BREAST CANCER FEMALE
     Dosage: UNK UNK, Q3W
     Route: 065
     Dates: start: 20140805, end: 20140805
  2. PARAPLATIN [Concomitant]
     Active Substance: CARBOPLATIN
     Dosage: UNK UNK, Q3W
     Route: 065
     Dates: start: 20141117, end: 20141117
  3. HERCEPTIN [Concomitant]
     Active Substance: TRASTUZUMAB
     Dosage: UNK UNK, Q3W
     Route: 065
     Dates: start: 20141117, end: 20141117
  4. DOCETAXEL. [Suspect]
     Active Substance: DOCETAXEL
     Dosage: 150 MG,Q3W
     Route: 065
     Dates: start: 20141117, end: 20141117
  5. GABAPENTIN. [Concomitant]
     Active Substance: GABAPENTIN
  6. CODEINE SULFATE. [Concomitant]
     Active Substance: CODEINE SULFATE
  7. HERCEPTIN [Concomitant]
     Active Substance: TRASTUZUMAB
     Indication: BREAST CANCER FEMALE
     Dosage: UNK UNK, Q3W
     Route: 065
     Dates: start: 20140805, end: 20140805
  8. ONDANSETRON [Concomitant]
     Active Substance: ONDANSETRON
  9. CEPHALEXIN AMEL [Concomitant]
     Active Substance: CEPHALEXIN
  10. LOPERAMIDE [Concomitant]
     Active Substance: LOPERAMIDE
  11. FLUOROURACIL. [Concomitant]
     Active Substance: FLUOROURACIL
     Indication: PRODUCT USED FOR UNKNOWN INDICATION
  12. NEOSAR [Concomitant]
     Active Substance: CYCLOPHOSPHAMIDE
     Indication: BREAST CANCER FEMALE
     Dosage: UNK
  13. METHOTREXATE. [Concomitant]
     Active Substance: METHOTREXATE
     Indication: BREAST CANCER FEMALE
     Dosage: UNK
  14. LORAZEPAM. [Concomitant]
     Active Substance: LORAZEPAM
  15. DOCETAXEL. [Suspect]
     Active Substance: DOCETAXEL
     Indication: BREAST CANCER FEMALE
     Dosage: 150 MG,Q3W
     Route: 065
     Dates: start: 20140805, end: 20140805
  16. DIAZEPAM. [Concomitant]
     Active Substance: DIAZEPAM
  17. OXYCODONE [Concomitant]
     Active Substance: OXYCODONE
  18. PENICILLIN V POTASSIUM. [Concomitant]
     Active Substance: PENICILLIN V POTASSIUM

REACTIONS (2)
  - Alopecia [Recovering/Resolving]
  - Psychological trauma [Unknown]

NARRATIVE: CASE EVENT DATE: 20140905
